FAERS Safety Report 5088972-6 (Version None)
Quarter: 2006Q3

REPORT INFORMATION
  Report Type: 
  Country: None (occurrence: None)
  Receive Date: 20060824
  Receipt Date: 20060824
  Transmission Date: 20061208
  Serious: Yes (Other)
  Sender: FDA-Public Use
  Company Number: None

PATIENT
  Age: 50 Year
  Sex: Female
  Weight: 58.514 kg

DRUGS (1)
  1. PHENYLEPHRINE HCL 10 MG KROGER [Suspect]
     Indication: SEASONAL ALLERGY
     Dosage: ONE DOSE OF 10 MG ONCE ONLY PO
     Route: 048
     Dates: start: 20060721, end: 20060721

REACTIONS (1)
  - CHEST PAIN [None]
